FAERS Safety Report 6354658-0 (Version None)
Quarter: 2009Q3

REPORT INFORMATION
  Report Type: 
  Country: None (occurrence: None)
  Receive Date: 20090909
  Receipt Date: 20090825
  Transmission Date: 20100115
  Serious: Yes (Hospitalization)
  Sender: FDA-Public Use
  Company Number: TCI2009A03151

PATIENT
  Age: 77 Year
  Sex: Male

DRUGS (9)
  1. TAKEPRON OD TABLETS 15 (LANSOPRAZOLE) [Suspect]
     Indication: REFLUX OESOPHAGITIS
     Dosage: 30 MG (30 MG, 1 IN 1 D) PER ORAL
     Route: 048
     Dates: start: 20080722, end: 20090805
  2. NORVASC [Concomitant]
  3. PRAVASTATIN [Concomitant]
  4. EPL (LECITHIN) [Concomitant]
  5. BIOLACT (LACTOMIN) [Concomitant]
  6. GANATON (ITOPRIDE HYDROCHLORIDE) [Concomitant]
  7. BUFFERIN [Concomitant]
  8. ETICALM (ETIZOLAM) [Concomitant]
  9. DIOVAN [Concomitant]

REACTIONS (3)
  - DECREASED APPETITE [None]
  - INAPPROPRIATE ANTIDIURETIC HORMONE SECRETION [None]
  - MALAISE [None]
